FAERS Safety Report 14028414 (Version 1)
Quarter: 2017Q3

REPORT INFORMATION
  Report Type: Spontaneous
  Country: US (occurrence: US)
  Receive Date: 20170930
  Receipt Date: 20170930
  Transmission Date: 20171128
  Serious: No
  Sender: FDA-Public Use
  Company Number: US-EMD SERONO-7036960

PATIENT
  Sex: Male

DRUGS (6)
  1. REBIF [Suspect]
     Active Substance: INTERFERON BETA-1A
     Indication: MULTIPLE SCLEROSIS
     Route: 058
     Dates: start: 20100121, end: 20101029
  2. REBIF [Suspect]
     Active Substance: INTERFERON BETA-1A
     Route: 058
     Dates: start: 20170825
  3. BACLOFEN. [Concomitant]
     Active Substance: BACLOFEN
     Indication: PREMEDICATION
  4. KLONOPIN [Concomitant]
     Active Substance: CLONAZEPAM
     Indication: MUSCLE TWITCHING
  5. BACLOFEN. [Concomitant]
     Active Substance: BACLOFEN
     Indication: MUSCLE TWITCHING
  6. REBIF [Suspect]
     Active Substance: INTERFERON BETA-1A
     Route: 058
     Dates: start: 20110318, end: 20120622

REACTIONS (8)
  - Muscle tightness [Not Recovered/Not Resolved]
  - Middle insomnia [Unknown]
  - Night sweats [Unknown]
  - Central nervous system lesion [Not Recovered/Not Resolved]
  - Headache [Unknown]
  - Influenza like illness [Not Recovered/Not Resolved]
  - Feeling abnormal [Not Recovered/Not Resolved]
  - Memory impairment [Not Recovered/Not Resolved]
